FAERS Safety Report 18403061 (Version 1)
Quarter: 2020Q4

REPORT INFORMATION
  Report Type: Spontaneous
  Country: FR (occurrence: FR)
  Receive Date: 20201019
  Receipt Date: 20201019
  Transmission Date: 20210114
  Serious: Yes (Hospitalization)
  Sender: FDA-Public Use
  Company Number: FR-ROCHE-2696009

PATIENT
  Age: 76 Year
  Sex: Male
  Weight: 68 kg

DRUGS (6)
  1. UVEDOSE [Concomitant]
     Active Substance: CHOLECALCIFEROL
  2. GAZYVARO [Suspect]
     Active Substance: OBINUTUZUMAB
     Indication: CHRONIC LYMPHOCYTIC LEUKAEMIA
     Dosage: DATE OF MOST RECENT DOSE: /DEC/2019
     Route: 065
     Dates: start: 201907
  3. CHLORAMINOPHENE [Suspect]
     Active Substance: CHLORAMBUCIL
     Indication: CHRONIC LYMPHOCYTIC LEUKAEMIA
     Dosage: DATE OF MOST RECENT DOSE: /DEC/2019
     Route: 048
     Dates: start: 201907
  4. ZELITREX [Concomitant]
     Active Substance: VALACYCLOVIR HYDROCHLORIDE
  5. BACTRIM [Concomitant]
     Active Substance: SULFAMETHOXAZOLE\TRIMETHOPRIM
  6. ALLOPURINOL. [Concomitant]
     Active Substance: ALLOPURINOL

REACTIONS (2)
  - Meningitis aseptic [Recovering/Resolving]
  - Encephalitis [Recovering/Resolving]

NARRATIVE: CASE EVENT DATE: 20200609
